FAERS Safety Report 14910369 (Version 1)
Quarter: 2018Q2

REPORT INFORMATION
  Report Type: Other
  Country: None (occurrence: US)
  Receive Date: 20180517
  Receipt Date: 20180517
  Transmission Date: 20180711
  Serious: Yes (Other)
  Sender: FDA-Public Use
  Company Number: US-MEDAC PHARMA, INC.-2048016

PATIENT

DRUGS (3)
  1. METHOTREXATE. [Suspect]
     Active Substance: METHOTREXATE
     Indication: SUICIDE ATTEMPT
  2. ACETAMINOPHEN. [Suspect]
     Active Substance: ACETAMINOPHEN
  3. VALPROIC ACID. [Suspect]
     Active Substance: VALPROIC ACID

REACTIONS (2)
  - Intentional overdose [Unknown]
  - Hepatotoxicity [Unknown]
